FAERS Safety Report 9376047 (Version 3)
Quarter: 2014Q1

REPORT INFORMATION
  Report Type: Spontaneous
  Country: US (occurrence: US)
  Receive Date: 20130629
  Receipt Date: 20140117
  Transmission Date: 20141002
  Serious: Yes (Hospitalization)
  Sender: FDA-Public Use
  Company Number: US-B.I. PHARMACEUTICALS,INC./RIDGEFIELD-2013-BI-18229BP

PATIENT
  Age: 86 Year
  Sex: Male
  Weight: 72.57 kg

DRUGS (7)
  1. PRADAXA [Suspect]
     Indication: ANTICOAGULANT THERAPY
     Dosage: 150 MG
     Route: 048
     Dates: start: 20101115, end: 20120718
  2. PRADAXA [Suspect]
     Indication: CEREBROVASCULAR ACCIDENT PROPHYLAXIS
  3. DIGOXIN [Concomitant]
     Dates: start: 2012
  4. SODIUM CHLORIDE [Concomitant]
     Route: 048
  5. LEXAPRO [Concomitant]
     Dates: start: 2007
  6. ASPIRIN [Concomitant]
     Dosage: 81 MG
     Route: 048
  7. METOPROLOL [Concomitant]
     Dates: start: 2010

REACTIONS (2)
  - Haematuria [Recovered/Resolved]
  - Anaemia [Unknown]
